FAERS Safety Report 6233028-X (Version None)
Quarter: 2009Q2

REPORT INFORMATION
  Report Type: 
  Country: None (occurrence: None)
  Receive Date: 20090617
  Receipt Date: 20090608
  Transmission Date: 20091009
  Serious: Yes (Hospitalization)
  Sender: FDA-Public Use
  Company Number: B0577871A

PATIENT
  Age: 35 Year
  Sex: Male

DRUGS (3)
  1. LAMICTAL [Suspect]
     Indication: EPILEPSY
     Route: 048
     Dates: start: 20090304, end: 20090318
  2. DEPAKENE [Concomitant]
     Indication: EPILEPSY
     Route: 048
  3. RIVOTRIL [Concomitant]
     Indication: EPILEPSY

REACTIONS (11)
  - DRUG HYPERSENSITIVITY [None]
  - HEPATOCELLULAR INJURY [None]
  - LEUKOPENIA [None]
  - LYMPHADENOPATHY [None]
  - NEUTROPENIA [None]
  - PYREXIA [None]
  - RASH ERYTHEMATOUS [None]
  - RASH MORBILLIFORM [None]
  - RASH PRURITIC [None]
  - THROMBOCYTOPENIA [None]
  - TOXIC SKIN ERUPTION [None]
